FAERS Safety Report 7350466-2 (Version None)
Quarter: 2011Q1

REPORT INFORMATION
  Report Type: 
  Country: None (occurrence: None)
  Receive Date: 20110314
  Receipt Date: 20091103
  Transmission Date: 20110831
  Serious: Yes (Other)
  Sender: FDA-Public Use
  Company Number: PHHY2009DE67426

PATIENT
  Sex: Female

DRUGS (1)
  1. EXTAVIA [Suspect]
     Route: 058
     Dates: start: 20091030

REACTIONS (2)
  - SYNCOPE [None]
  - HEAD INJURY [None]
